FAERS Safety Report 8175522-0 (Version None)
Quarter: 2012Q1

REPORT INFORMATION
  Report Type: 
  Country: None (occurrence: None)
  Receive Date: 20120229
  Receipt Date: 20120224
  Transmission Date: 20120608
  Serious: Yes (Hospitalization)
  Sender: FDA-Public Use
  Company Number: FR-ABBOTT-12P-056-0909269-00

PATIENT
  Age: 14 Year
  Sex: Female

DRUGS (5)
  1. DESLORATADINE [Suspect]
     Indication: RASH PRURITIC
  2. VALIUM [Suspect]
     Indication: EPILEPSY
     Route: 048
     Dates: start: 20111222
  3. DEPAKENE [Suspect]
     Indication: EPILEPSY
     Route: 048
     Dates: start: 20111226
  4. LAMOTRIGINE [Suspect]
     Indication: EPILEPSY
     Route: 048
     Dates: start: 20111107, end: 20111222
  5. DESLORATADINE [Suspect]
     Indication: EPILEPSY
     Route: 048
     Dates: start: 20111203

REACTIONS (1)
  - DRUG RASH WITH EOSINOPHILIA AND SYSTEMIC SYMPTOMS [None]
